FAERS Safety Report 14782185 (Version 2)
Quarter: 2018Q2

REPORT INFORMATION
  Report Type: Report from Study
  Country: US (occurrence: US)
  Receive Date: 20180420
  Receipt Date: 20180502
  Transmission Date: 20180711
  Serious: Yes (Hospitalization, Other)
  Sender: FDA-Public Use
  Company Number: US-GILEAD-2018-0333735

PATIENT
  Age: 70 Year
  Sex: Female
  Weight: 67.57 kg

DRUGS (6)
  1. IRON [Concomitant]
     Active Substance: IRON
  2. RESTASIS [Concomitant]
     Active Substance: CYCLOSPORINE
  3. VITAMIN C [Concomitant]
     Active Substance: ASCORBIC ACID
  4. AMBRISENTAN [Suspect]
     Active Substance: AMBRISENTAN
     Indication: PULMONARY HYPERTENSION
     Dosage: 5 MG, QD
     Route: 065
     Dates: start: 20180321
  5. AMBRISENTAN [Suspect]
     Active Substance: AMBRISENTAN
     Indication: CREST SYNDROME
  6. ASPIRIN                            /00002701/ [Concomitant]
     Active Substance: ASPIRIN

REACTIONS (1)
  - Upper gastrointestinal haemorrhage [Not Recovered/Not Resolved]
